FAERS Safety Report 8923072 (Version 1)
Quarter: 2012Q4

REPORT INFORMATION
  Report Type: 
  Country: GB (occurrence: GB)
  Receive Date: 20121124
  Receipt Date: 20121124
  Transmission Date: 20130627
  Serious: Yes (Life-Threatening, Hospitalization, Other)
  Sender: FDA-Public Use
  Company Number: PHHY2012GB106283

PATIENT
  Age: 69 Year
  Sex: Male
  Weight: 78.6 kg

DRUGS (15)
  1. METHOTREXATE [Suspect]
     Indication: PSORIATIC ARTHROPATHY
     Dosage: 10 mg, QW
     Route: 048
     Dates: start: 20121008, end: 20121030
  2. ACITRETIN [Interacting]
  3. GAVISCON ADVANCE [Concomitant]
  4. SULINDAC [Concomitant]
  5. BUMETANIDE [Concomitant]
  6. MOXONIDINE [Concomitant]
  7. SULFASALAZINE [Concomitant]
  8. RANITIDINE [Concomitant]
  9. AMLODIPINE [Concomitant]
  10. ISOSORBIDE [Concomitant]
  11. DOXAZOSIN MESYLATE [Concomitant]
  12. NICORANDIL [Concomitant]
  13. BISOPROLOL [Concomitant]
  14. ASPIRIN [Concomitant]
  15. ATORVASTATIN [Concomitant]

REACTIONS (13)
  - Neutropenic sepsis [Not Recovered/Not Resolved]
  - Neutrophil count decreased [Not Recovered/Not Resolved]
  - White blood cell count decreased [Not Recovered/Not Resolved]
  - Blood albumin decreased [Not Recovered/Not Resolved]
  - Platelet count decreased [Not Recovered/Not Resolved]
  - Haemoglobin decreased [Not Recovered/Not Resolved]
  - C-reactive protein increased [Not Recovered/Not Resolved]
  - Mean cell volume increased [Not Recovered/Not Resolved]
  - Mouth ulceration [Not Recovered/Not Resolved]
  - Cough [Not Recovered/Not Resolved]
  - Dizziness [Not Recovered/Not Resolved]
  - Malaise [Not Recovered/Not Resolved]
  - Drug interaction [Unknown]
